FAERS Safety Report 9123160 (Version 1)
Quarter: 2013Q1

REPORT INFORMATION
  Report Type: Spontaneous
  Country: US (occurrence: US)
  Receive Date: 20130227
  Receipt Date: 20130227
  Transmission Date: 20140127
  Serious: Yes (Other)
  Sender: FDA-Public Use
  Company Number: US-SANOFI-AVENTIS-2013SA017094

PATIENT
  Age: 75 Year
  Sex: Female
  Weight: 173 kg

DRUGS (23)
  1. MULTAQ [Suspect]
     Route: 048
     Dates: end: 20121106
  2. KLOR-CON [Concomitant]
     Route: 048
  3. SEPTRA [Concomitant]
  4. CARDIZEM CD [Concomitant]
     Route: 048
  5. LASIX [Concomitant]
     Route: 048
  6. TENORMIN [Concomitant]
     Route: 048
  7. COUMADIN [Concomitant]
  8. DIGESTIVES, INCL ENZYMES [Concomitant]
     Route: 048
  9. CALCIUM MAGNESIUM ZINC [Concomitant]
  10. FLAXSEED OIL [Concomitant]
     Route: 048
  11. PRILOSEC [Concomitant]
  12. MAGNESIUM OXIDE [Concomitant]
     Route: 048
  13. VITAMIN D3 [Concomitant]
     Dosage: DOSE:1000 UNIT(S)
     Route: 048
  14. OMEGA 3 [Concomitant]
     Route: 048
  15. THERAGRAN [Concomitant]
     Route: 048
  16. NIACIN [Concomitant]
     Route: 048
  17. COENZYME Q10 [Concomitant]
     Route: 048
  18. ATIVAN [Concomitant]
     Route: 048
  19. PLANT ALKALOIDS AND OTHER NATURAL PRODUCTS [Concomitant]
  20. NITROSTAT [Concomitant]
     Route: 060
  21. COZAAR [Concomitant]
     Route: 048
  22. ALL OTHER THERAPEUTIC PRODUCTS [Concomitant]
  23. GENERAL NUTRIENTS [Concomitant]

REACTIONS (2)
  - Pulmonary toxicity [Unknown]
  - Cough [Unknown]
